FAERS Safety Report 7767607-5 (Version None)
Quarter: 2011Q3

REPORT INFORMATION
  Report Type: 
  Country: None (occurrence: None)
  Receive Date: 20110922
  Receipt Date: 20110915
  Transmission Date: 20111222
  Serious: Yes (Death, Other)
  Sender: FDA-Public Use
  Company Number: FR-ROXANE LABORATORIES, INC.-2011-RO-01303RO

PATIENT
  Age: 19 Year
  Sex: Male

DRUGS (6)
  1. AMISULPRIDE [Suspect]
  2. ZOLPIDEM [Suspect]
  3. METHADONE HCL [Suspect]
     Indication: DRUG WITHDRAWAL MAINTENANCE THERAPY
     Dosage: 40 MG
  4. TRIMEPRAZINE TAB [Suspect]
  5. CYAMEMAZINE [Suspect]
  6. TROPATEPINE [Suspect]

REACTIONS (2)
  - CARDIAC ARREST [None]
  - ELECTROCARDIOGRAM QT PROLONGED [None]
